FAERS Safety Report 25194743 (Version 2)
Quarter: 2025Q2

REPORT INFORMATION
  Report Type: Spontaneous
  Country: ES (occurrence: ES)
  Receive Date: 20250414
  Receipt Date: 20250422
  Transmission Date: 20250717
  Serious: Yes (Other)
  Sender: ABBVIE
  Company Number: ES-AMGEN-ESPSP2025063288

PATIENT
  Age: 51 Year
  Sex: Male

DRUGS (3)
  1. DEXAMETHASONE [Suspect]
     Active Substance: DEXAMETHASONE
     Indication: Disease recurrence
     Route: 050
  2. KYPROLIS [Suspect]
     Active Substance: CARFILZOMIB
     Indication: Disease recurrence
     Route: 065
  3. ISATUXIMAB [Suspect]
     Active Substance: ISATUXIMAB
     Indication: Disease recurrence
     Route: 065

REACTIONS (2)
  - Thrombotic microangiopathy [Unknown]
  - Off label use [Unknown]
